FAERS Safety Report 7534891-2 (Version None)
Quarter: 2011Q2

REPORT INFORMATION
  Report Type: 
  Country: None (occurrence: None)
  Receive Date: 20110609
  Receipt Date: 20081113
  Transmission Date: 20111010
  Serious: Yes (Other)
  Sender: FDA-Public Use
  Company Number: PHHY2008CA28270

PATIENT
  Sex: Female
  Weight: 57 kg

DRUGS (6)
  1. DESFERAL [Suspect]
     Indication: IRON OVERLOAD
  2. CALCIUM CARBONATE [Concomitant]
  3. PAMIDRONATE DISODIUM [Concomitant]
  4. VITAMIN D [Concomitant]
  5. ORAL CONTRACEPTIVE NOS [Concomitant]
  6. DESFERAL [Suspect]
     Indication: THALASSAEMIA BETA
     Dosage: 21 GM/WEEK
     Route: 042

REACTIONS (1)
  - CARDIAC SIDEROSIS [None]
